FAERS Safety Report 5663854-7 (Version None)
Quarter: 2008Q1

REPORT INFORMATION
  Report Type: 
  Country: None (occurrence: None)
  Receive Date: 20080311
  Receipt Date: 20080220
  Transmission Date: 20080703
  Serious: Yes (Death, Hospitalization, Other)
  Sender: FDA-Public Use
  Company Number: 2008US000634

PATIENT
  Age: 57 Year
  Sex: Male

DRUGS (5)
  1. AMBISOME [Suspect]
     Indication: DRUG USE FOR UNKNOWN INDICATION
     Dosage: 300 MG, UID/QD, IV NOS
     Route: 042
     Dates: start: 20070501, end: 20070718
  2. AMBISOME [Suspect]
     Indication: DRUG USE FOR UNKNOWN INDICATION
     Dosage: 300 MG, UID/QD, IV NOS
     Route: 042
     Dates: start: 20060901
  3. FUNGUARD (MICAFUNGIN SODIUM) [Concomitant]
  4. VFEND [Concomitant]
  5. ITRACONAZOLE [Concomitant]

REACTIONS (8)
  - ABDOMINAL PAIN UPPER [None]
  - CARDIO-RESPIRATORY ARREST [None]
  - DISEASE RECURRENCE [None]
  - ENDOCARDITIS CANDIDA [None]
  - HAEMOLYTIC ANAEMIA [None]
  - HYPOKALAEMIA [None]
  - INFLAMMATION [None]
  - PYREXIA [None]
